FAERS Safety Report 7605513-7 (Version None)
Quarter: 2011Q3

REPORT INFORMATION
  Report Type: 
  Country: None (occurrence: None)
  Receive Date: 20110713
  Receipt Date: 20110708
  Transmission Date: 20111222
  Serious: No
  Sender: FDA-Public Use
  Company Number: US-PFIZER INC-2011114988

PATIENT
  Sex: Female
  Weight: 65.76 kg

DRUGS (5)
  1. IBUPROFEN (ADVIL) [Suspect]
     Indication: JOINT SWELLING
     Dosage: 400MG EVERY FOUR HOURS
     Route: 048
     Dates: start: 20110210
  2. CALCIUM [Concomitant]
     Indication: BLOOD CALCIUM DECREASED
     Dosage: UNK
  3. IBUPROFEN (ADVIL) [Suspect]
     Dosage: 800MG EVERY FOUR HOURS
     Dates: start: 20110501, end: 20110526
  4. PRILOSEC [Concomitant]
     Indication: DYSPEPSIA
     Dosage: UNK
  5. MULTI-VITAMINS [Concomitant]
     Dosage: UNK

REACTIONS (4)
  - CONTUSION [None]
  - OEDEMA PERIPHERAL [None]
  - ERYTHEMA [None]
  - PAIN [None]
